FAERS Safety Report 8175222-7 (Version None)
Quarter: 2012Q1

REPORT INFORMATION
  Report Type: 
  Country: None (occurrence: None)
  Receive Date: 20120229
  Receipt Date: 20120220
  Transmission Date: 20120608
  Serious: Yes (Hospitalization, Other)
  Sender: FDA-Public Use
  Company Number: US-CELGENEUS-163-21880-11101441

PATIENT
  Sex: Female
  Weight: 64.468 kg

DRUGS (14)
  1. PROCRIT [Concomitant]
     Route: 065
  2. METFORMIN HCL [Concomitant]
     Dosage: 500 MILLIGRAM
     Route: 065
     Dates: start: 20110525
  3. MOXIFLOXACIN [Concomitant]
     Dosage: 400 MILLIGRAM
     Route: 065
     Dates: start: 20110922
  4. TIAZAC [Concomitant]
     Dosage: 240 MILLIGRAM
     Route: 065
     Dates: start: 20110525
  5. ASPIRIN [Concomitant]
     Dosage: 81 MILLIGRAM
     Route: 065
     Dates: start: 20110525
  6. HYZAAR [Concomitant]
     Dosage: 100/25
     Route: 065
     Dates: start: 20110525
  7. LASIX [Concomitant]
     Route: 065
  8. REVLIMID [Suspect]
     Dosage: 10 MILLIGRAM
     Route: 048
     Dates: start: 20100730, end: 20111118
  9. REVLIMID [Suspect]
     Dosage: 10 MILLIGRAM
     Route: 048
     Dates: start: 20120116
  10. CHOLESTYRAMINE/COLESTIPOL [Concomitant]
     Route: 065
  11. DILTIAZEM HCL [Concomitant]
     Route: 065
  12. TIAZAC [Concomitant]
     Dosage: 360 MILLIGRAM
     Route: 065
  13. REVLIMID [Suspect]
     Dosage: 10 MILLIGRAM
     Route: 048
     Dates: start: 20120221
  14. WELCHOL [Concomitant]
     Dosage: 625 MILLIGRAM
     Route: 065
     Dates: start: 20110922

REACTIONS (5)
  - SUBARACHNOID HAEMORRHAGE [None]
  - LIVER FUNCTION TEST ABNORMAL [None]
  - PNEUMONIA [None]
  - FALL [None]
  - NASOPHARYNGITIS [None]
